FAERS Safety Report 10478043 (Version 1)
Quarter: 2014Q3

REPORT INFORMATION
  Report Type: Spontaneous
  Country: US (occurrence: None)
  Receive Date: 20140925
  Receipt Date: 20140925
  Transmission Date: 20150326
  Serious: Yes (Life-Threatening, Hospitalization, Disabling)
  Sender: FDA-Public Use
  Company Number: None

PATIENT
  Age: 49 Year
  Sex: Male
  Weight: 125.19 kg

DRUGS (8)
  1. LEVOTHYROXINE [Concomitant]
     Active Substance: LEVOTHYROXINE
  2. SIMVASTATIN. [Concomitant]
     Active Substance: SIMVASTATIN
  3. MELOXICAM. [Suspect]
     Active Substance: MELOXICAM
     Indication: ARTHRITIS
     Dosage: TAKE ONE TABLET BY MOUTH DAILY
     Dates: start: 20130901, end: 20140901
  4. GABAPENTIN. [Concomitant]
     Active Substance: GABAPENTIN
  5. TOPAMAX [Concomitant]
     Active Substance: TOPIRAMATE
  6. LEMEMIR INSULIN [Concomitant]
  7. GEMFIBROZIL. [Concomitant]
     Active Substance: GEMFIBROZIL
  8. CYMBALTA [Concomitant]
     Active Substance: DULOXETINE HYDROCHLORIDE

REACTIONS (2)
  - Asthenia [None]
  - Abdominal pain lower [None]

NARRATIVE: CASE EVENT DATE: 20140831
